FAERS Safety Report 4293016-X (Version None)
Quarter: 2004Q1

REPORT INFORMATION
  Report Type: 
  Country: None (occurrence: None)
  Receive Date: 20040212
  Receipt Date: 20030808
  Transmission Date: 20041129
  Serious: No
  Sender: FDA-Public Use
  Company Number: US-GLAXOSMITHKLINE-A0420846A

PATIENT

DRUGS (2)
  1. PAXIL [Suspect]
     Route: 048
  2. UNKNOWN [Concomitant]

REACTIONS (4)
  - CHILLS [None]
  - DIZZINESS [None]
  - DRUG WITHDRAWAL SYNDROME [None]
  - PYREXIA [None]
